FAERS Safety Report 8739881 (Version 2)
Quarter: 2013Q4

REPORT INFORMATION
  Report Type: Spontaneous
  Country: US (occurrence: US)
  Receive Date: 20120823
  Receipt Date: 20131101
  Transmission Date: 20140711
  Serious: No
  Sender: FDA-Public Use
  Company Number: US-009507513-1208USA002040

PATIENT
  Sex: Female

DRUGS (2)
  1. DULERA [Suspect]
     Dosage: 200/5, 2 PUFFS A DAY
     Dates: start: 20120630
  2. FLOVENT [Concomitant]

REACTIONS (3)
  - Local swelling [Unknown]
  - Swelling face [Unknown]
  - Local swelling [Unknown]
